FAERS Safety Report 22359841 (Version 2)
Quarter: 2023Q2

REPORT INFORMATION
  Report Type: Report from Study
  Country: ES (occurrence: None)
  Receive Date: 20230524
  Receipt Date: 20230615
  Transmission Date: 20230722
  Serious: Yes (Other)
  Sender: FDA-Public Use
  Company Number: ES-ROCHE-3353337

PATIENT
  Age: 65 Year
  Sex: Female

DRUGS (19)
  1. ATEZOLIZUMAB [Suspect]
     Active Substance: ATEZOLIZUMAB
     Indication: Hepatocellular carcinoma
     Dosage: LAST DOSE ON 27/APR/2023
     Route: 041
     Dates: start: 20211223
  2. BEVACIZUMAB [Suspect]
     Active Substance: BEVACIZUMAB
     Indication: Hepatocellular carcinoma
     Route: 042
     Dates: start: 20211223
  3. ESOMEPRAZOLE [Concomitant]
     Active Substance: ESOMEPRAZOLE
     Route: 048
  4. CARVEDILOL [Concomitant]
     Active Substance: CARVEDILOL
     Indication: Hypertension
     Route: 048
  5. ALDACTONE [Concomitant]
     Active Substance: SPIRONOLACTONE
     Indication: Hypertension
     Route: 048
  6. PROLIA [Concomitant]
     Active Substance: DENOSUMAB
     Indication: Osteoporosis
     Route: 058
  7. MYCOSTATIN [Concomitant]
     Active Substance: NYSTATIN
     Indication: Mucosal inflammation
     Dosage: 100000U/ML
     Route: 048
     Dates: start: 20220303, end: 20220313
  8. DEXKETOPROFEN TROMETAMOL [Concomitant]
     Active Substance: DEXKETOPROFEN TROMETAMOL
     Route: 048
     Dates: start: 20220317, end: 20220318
  9. MAGNOGENE [Concomitant]
     Indication: Hypomagnesaemia
     Route: 048
     Dates: start: 20220413
  10. AMOXICILLIN [Concomitant]
     Active Substance: AMOXICILLIN
     Indication: Pneumonia
     Route: 042
     Dates: start: 20220426, end: 20220517
  11. CLAVULANIC ACID [Concomitant]
     Active Substance: CLAVULANIC ACID
     Indication: Pneumonia
     Route: 042
     Dates: start: 20220426, end: 20220517
  12. LEVOTHYROXINE SODIUM [Concomitant]
     Active Substance: LEVOTHYROXINE SODIUM
     Indication: Hypothyroidism
     Route: 048
     Dates: start: 20220527, end: 20220707
  13. LEVOTHYROXINE SODIUM [Concomitant]
     Active Substance: LEVOTHYROXINE SODIUM
     Route: 048
     Dates: start: 20220908
  14. BETAMETHASONE [Concomitant]
     Active Substance: BETAMETHASONE
     Indication: Scoliosis
     Dosage: 2CC
     Route: 030
     Dates: start: 20220927, end: 20220927
  15. BUPIVACAINE [Concomitant]
     Active Substance: BUPIVACAINE
     Indication: Scoliosis
     Dosage: 8CC
     Route: 030
     Dates: start: 20220927, end: 20220927
  16. FUROSEMIDE [Concomitant]
     Active Substance: FUROSEMIDE
     Indication: Abdominal distension
     Route: 048
     Dates: start: 20230312, end: 20230312
  17. FUROSEMIDE [Concomitant]
     Active Substance: FUROSEMIDE
     Route: 048
     Dates: start: 20230313, end: 20230313
  18. FUROSEMIDE [Concomitant]
     Active Substance: FUROSEMIDE
     Indication: Oedema peripheral
     Route: 048
     Dates: start: 20230405
  19. MODERNA COVID-19 VACCINE [Concomitant]
     Active Substance: ELASOMERAN
     Route: 030
     Dates: start: 20220614, end: 20220614

REACTIONS (1)
  - Dry mouth [Not Recovered/Not Resolved]

NARRATIVE: CASE EVENT DATE: 20230517
